FAERS Safety Report 9501266 (Version 2)
Quarter: 2014Q1

REPORT INFORMATION
  Report Type: Report from Study
  Country: CA (occurrence: CA)
  Receive Date: 20130905
  Receipt Date: 20140128
  Transmission Date: 20141002
  Serious: Yes (Other)
  Sender: FDA-Public Use
  Company Number: CA-JNJFOC-20130900630

PATIENT
  Age: 41 Year
  Sex: Female

DRUGS (4)
  1. SIMPONI [Suspect]
     Indication: PSORIATIC ARTHROPATHY
     Route: 058
     Dates: start: 20130225
  2. METHOTREXATE [Concomitant]
     Route: 048
  3. FOLIC ACID [Concomitant]
     Route: 065
  4. ADVIL [Concomitant]
     Route: 065

REACTIONS (2)
  - Abdominal distension [Recovering/Resolving]
  - Abdominal pain [Recovering/Resolving]
